FAERS Safety Report 5195655-0 (Version None)
Quarter: 2006Q4

REPORT INFORMATION
  Report Type: 
  Country: None (occurrence: None)
  Receive Date: 20061222
  Receipt Date: 20061222
  Transmission Date: 20070319
  Serious: Yes (Life-Threatening, Other)
  Sender: FDA-Public Use
  Company Number: None

PATIENT
  Age: 16 Year
  Sex: Female
  Weight: 45.3597 kg

DRUGS (1)
  1. CLINDAMYCIN [Suspect]
     Indication: STAPHYLOCOCCAL INFECTION
     Dosage: DK
     Dates: start: 20051220, end: 20060105

REACTIONS (1)
  - CLOSTRIDIAL INFECTION [None]
